FAERS Safety Report 23499856 (Version 5)
Quarter: 2025Q3

REPORT INFORMATION
  Report Type: Report from Study
  Country: CA (occurrence: CA)
  Receive Date: 20240208
  Receipt Date: 20250717
  Transmission Date: 20251021
  Serious: Yes (Other)
  Sender: TAKEDA
  Company Number: CA-TAKEDA-2024TUS007712

PATIENT
  Age: 64 Year
  Sex: Female

DRUGS (13)
  1. VEDOLIZUMAB [Suspect]
     Active Substance: VEDOLIZUMAB
     Indication: Colitis ulcerative
  2. VEDOLIZUMAB [Suspect]
     Active Substance: VEDOLIZUMAB
     Dosage: 300 MILLIGRAM, Q4WEEKS
     Dates: start: 20191113
  3. VEDOLIZUMAB [Suspect]
     Active Substance: VEDOLIZUMAB
     Indication: Colitis ulcerative
     Dosage: 108 MILLIGRAM, Q2WEEKS
     Dates: start: 20230123
  4. PREDNISONE [Suspect]
     Active Substance: PREDNISONE
     Dosage: 50 MILLIGRAM, QD
  5. LEVOTHYROXINE [Concomitant]
     Active Substance: LEVOTHYROXINE
  6. TRICHLORMETHIAZIDE [Concomitant]
     Active Substance: TRICHLORMETHIAZIDE
  7. CALCIUM [Concomitant]
     Active Substance: CALCIUM
  8. VITAMIN D [Concomitant]
     Active Substance: VITAMIN D NOS
  9. NALTREXONE [Concomitant]
     Active Substance: NALTREXONE
  10. DILTIAZEM [Concomitant]
     Active Substance: DILTIAZEM
  11. SYNTHROID [Concomitant]
     Active Substance: LEVOTHYROXINE SODIUM
  12. Carbonate [Concomitant]
  13. GABAPENTIN [Concomitant]
     Active Substance: GABAPENTIN

REACTIONS (13)
  - Haematochezia [Unknown]
  - Colitis ulcerative [Unknown]
  - Pneumonia [Recovering/Resolving]
  - Frequent bowel movements [Not Recovered/Not Resolved]
  - Intervertebral disc degeneration [Unknown]
  - Agitation [Unknown]
  - Inappropriate schedule of product administration [Unknown]
  - Restless legs syndrome [Unknown]
  - Insomnia [Unknown]
  - Product dose omission issue [Unknown]
  - Product distribution issue [Unknown]
  - Headache [Unknown]
  - Bronchitis [Unknown]

NARRATIVE: CASE EVENT DATE: 20231201
